FAERS Safety Report 14405104 (Version 1)
Quarter: 2018Q1

REPORT INFORMATION
  Report Type: Spontaneous
  Country: US (occurrence: US)
  Receive Date: 20180118
  Receipt Date: 20180118
  Transmission Date: 20180509
  Serious: No
  Sender: FDA-Public Use
  Company Number: US-JNJFOC-20171125934

PATIENT
  Age: 65 Year
  Sex: Male
  Weight: 72.58 kg

DRUGS (1)
  1. KETOCONAZOLE. [Suspect]
     Active Substance: KETOCONAZOLE
     Indication: FUNGAL INFECTION
     Dosage: 2 PERCENT
     Route: 061
     Dates: start: 201701

REACTIONS (12)
  - Dry eye [Unknown]
  - Nasal dryness [Unknown]
  - Eye swelling [Unknown]
  - Hair texture abnormal [Unknown]
  - Dry mouth [Not Recovered/Not Resolved]
  - Lip swelling [Not Recovered/Not Resolved]
  - Dizziness [Not Recovered/Not Resolved]
  - Abdominal discomfort [Not Recovered/Not Resolved]
  - Lip dry [Unknown]
  - Dysgeusia [Unknown]
  - Feeding disorder [Not Recovered/Not Resolved]
  - Accidental exposure to product [Unknown]

NARRATIVE: CASE EVENT DATE: 20171123
